FAERS Safety Report 7298233-2 (Version None)
Quarter: 2011Q1

REPORT INFORMATION
  Report Type: 
  Country: None (occurrence: None)
  Receive Date: 20110217
  Receipt Date: 20110112
  Transmission Date: 20110831
  Serious: Yes (Hospitalization, Other)
  Sender: FDA-Public Use
  Company Number: US-BAYER-201033312NA

PATIENT
  Sex: Female
  Weight: 81.179 kg

DRUGS (6)
  1. METHOCARBAMOL [Concomitant]
     Dosage: 750 MG, UNK
     Dates: start: 20070312
  2. HYDROCODONE BITARTRATE AND ACETAMINOPHEN [Concomitant]
     Dosage: 5 MG, UNK
     Dates: start: 20070312
  3. YASMIN [Suspect]
     Indication: POLYCYSTIC OVARIES
     Route: 048
     Dates: start: 20060101, end: 20070501
  4. TRAMADOL [Concomitant]
     Dosage: 50 MG, UNK
     Dates: start: 20070312
  5. YAZ [Suspect]
     Indication: PRODUCT USED FOR UNKNOWN INDICATION
     Route: 048
     Dates: start: 20060101, end: 20070501
  6. OCELLA [Suspect]
     Indication: PRODUCT USED FOR UNKNOWN INDICATION
     Route: 048
     Dates: start: 20060101, end: 20070501

REACTIONS (7)
  - GALLBLADDER INJURY [None]
  - FLATULENCE [None]
  - ABDOMINAL PAIN [None]
  - CHOLECYSTITIS CHRONIC [None]
  - CHOLELITHIASIS [None]
  - ABDOMINAL PAIN UPPER [None]
  - PAIN [None]
